FAERS Safety Report 10656963 (Version 3)
Quarter: 2015Q2

REPORT INFORMATION
  Report Type: Spontaneous
  Country: DE (occurrence: None)
  Receive Date: 20141215
  Receipt Date: 20150401
  Transmission Date: 20150821
  Serious: Yes (Hospitalization, Other)
  Sender: FDA-Public Use
  Company Number: 2014-20918

PATIENT
  Age: 64 Year
  Sex: Female

DRUGS (1)
  1. EYLEA [Suspect]
     Active Substance: AFLIBERCEPT
     Indication: NEOVASCULAR AGE-RELATED MACULAR DEGENERATION
     Route: 031
     Dates: start: 201404, end: 20140918

REACTIONS (3)
  - Cataract [None]
  - Vitreous detachment [None]
  - Macular hole [None]

NARRATIVE: CASE EVENT DATE: 20141113
